FAERS Safety Report 16691458 (Version 1)
Quarter: 2019Q3

REPORT INFORMATION
  Report Type: Spontaneous
  Country: US (occurrence: US)
  Receive Date: 20190624
  Receipt Date: 20190624
  Transmission Date: 20191004
  Serious: Yes (Disabling)
  Sender: FDA-Public Use
  Company Number: None

PATIENT
  Age: 39 Year
  Sex: Female
  Weight: 90.27 kg

DRUGS (2)
  1. ABILIFY [Concomitant]
     Active Substance: ARIPIPRAZOLE
  2. OXTELLAR XR [Suspect]
     Active Substance: OXCARBAZEPINE
     Indication: MENTAL DISORDER
     Dosage: ?          QUANTITY:1 DF DOSAGE FORM;?
     Route: 048
     Dates: start: 20190131

REACTIONS (3)
  - Depression [None]
  - Hypertension [None]
  - Palpitations [None]

NARRATIVE: CASE EVENT DATE: 20190623
